FAERS Safety Report 9579217 (Version 1)
Quarter: 2013Q4

REPORT INFORMATION
  Report Type: Spontaneous
  Country: US (occurrence: US)
  Receive Date: 20131001
  Receipt Date: 20131001
  Transmission Date: 20140711
  Serious: No
  Sender: FDA-Public Use
  Company Number: US-AMGEN-USASP2013017232

PATIENT
  Age: 2 Year
  Sex: Female
  Weight: 14.97 kg

DRUGS (6)
  1. ENBREL [Suspect]
     Indication: JUVENILE IDIOPATHIC ARTHRITIS
     Dosage: 0.36 ML, QWK
     Route: 058
  2. OMEGA 3                            /01334101/ [Concomitant]
     Dosage: UNK
  3. MULTIVITAMINS, PLAIN [Concomitant]
     Dosage: UNK
  4. VITAMIN D                          /00107901/ [Concomitant]
     Dosage: 400 UNIT, UNK
  5. METHOTREXATE [Concomitant]
     Dosage: 2.5 MG, UNK
  6. PREDNISONE [Concomitant]
     Dosage: UNK

REACTIONS (1)
  - Eye inflammation [Unknown]
